FAERS Safety Report 15143206 (Version 3)
Quarter: 2020Q1

REPORT INFORMATION
  Report Type: Spontaneous
  Country: DE (occurrence: DE)
  Receive Date: 20180713
  Receipt Date: 20200103
  Transmission Date: 20200409
  Serious: Yes (Other)
  Sender: FDA-Public Use
  Company Number: DE-MYLANLABS-2018M1049700

PATIENT
  Sex: Female

DRUGS (4)
  1. FORMOTEROL [Suspect]
     Active Substance: FORMOTEROL
     Dosage: 12 MICROGRAM, QD
     Route: 065
  2. FORMOTEROL [Suspect]
     Active Substance: FORMOTEROL
     Indication: PRODUCT USED FOR UNKNOWN INDICATION
     Dosage: UNK, UNK UNK, UNKNOWN FREQ.
     Route: 065
  3. FORMOTEROL [Suspect]
     Active Substance: FORMOTEROL
     Indication: PRODUCT USED FOR UNKNOWN INDICATION
     Dosage: 12 ?G, QD
     Route: 065
  4. FORMOTEROL [Suspect]
     Active Substance: FORMOTEROL
     Dosage: UNK UNK, UNKNOWN FREQ.

REACTIONS (2)
  - Foreign body aspiration [Recovering/Resolving]
  - Device malfunction [Recovering/Resolving]
